FAERS Safety Report 5188793-X (Version None)
Quarter: 2006Q4

REPORT INFORMATION
  Report Type: 
  Country: None (occurrence: None)
  Receive Date: 20061215
  Receipt Date: 20061130
  Transmission Date: 20070319
  Serious: Yes (Hospitalization)
  Sender: FDA-Public Use
  Company Number: 2006-151293-NL

PATIENT
  Age: 44 Year
  Sex: Female

DRUGS (1)
  1. NUVARING [Suspect]

REACTIONS (3)
  - CEREBRAL THROMBOSIS [None]
  - HAEMORRHAGE INTRACRANIAL [None]
  - SYNCOPE [None]
